FAERS Safety Report 8025156-3 (Version None)
Quarter: 2012Q1

REPORT INFORMATION
  Report Type: 
  Country: None (occurrence: None)
  Receive Date: 20120105
  Receipt Date: 20120103
  Transmission Date: 20120608
  Serious: Yes (Hospitalization)
  Sender: FDA-Public Use
  Company Number: US-GLAXOSMITHKLINE-A0899082A

PATIENT
  Age: 54 Year
  Sex: Male
  Weight: 105.5 kg

DRUGS (10)
  1. CIALIS [Concomitant]
  2. METFORMIN HCL [Concomitant]
  3. DIOVAN HCT [Concomitant]
  4. TRICOR [Concomitant]
  5. AVANDAMET [Suspect]
     Indication: DIABETES MELLITUS
     Route: 048
  6. PERCOCET [Concomitant]
  7. AVANDIA [Suspect]
     Indication: DIABETES MELLITUS
     Dosage: 4MG PER DAY
     Route: 048
     Dates: end: 20100804
  8. PRAVASTATIN [Concomitant]
  9. RANITIDINE [Concomitant]
  10. CELEBREX [Concomitant]

REACTIONS (2)
  - ACUTE CORONARY SYNDROME [None]
  - MYOCARDIAL INFARCTION [None]
